FAERS Safety Report 15479492 (Version 1)
Quarter: 2018Q4

REPORT INFORMATION
  Report Type: Other
  Country: FR (occurrence: FR)
  Receive Date: 20181009
  Receipt Date: 20181009
  Transmission Date: 20190205
  Serious: Yes (Life-Threatening, Hospitalization)
  Sender: FDA-Public Use
  Company Number: FR-ALCAMI_CORPORATION-USA-POI0581201800011

PATIENT
  Sex: Female

DRUGS (1)
  1. AZASAN [Suspect]
     Active Substance: AZATHIOPRINE
     Route: 064
     Dates: start: 2017, end: 2018

REACTIONS (1)
  - Lymphopenia [Recovered/Resolved]

NARRATIVE: CASE EVENT DATE: 20180124
